FAERS Safety Report 25915804 (Version 2)
Quarter: 2025Q4

REPORT INFORMATION
  Report Type: Spontaneous
  Country: US (occurrence: US)
  Receive Date: 20251013
  Receipt Date: 20251017
  Transmission Date: 20260117
  Serious: Yes (Other)
  Sender: ABBVIE
  Company Number: US-ABBVIE-6491998

PATIENT

DRUGS (1)
  1. REFRESH RELIEVA [Suspect]
     Active Substance: CARBOXYMETHYLCELLULOSE SODIUM\GLYCERIN
     Indication: Postoperative care
     Dosage: PRESERVATIVE FREE
     Route: 047

REACTIONS (3)
  - Cataract [Unknown]
  - Product label issue [Unknown]
  - Incorrect dose administered [Unknown]
